FAERS Safety Report 25529458 (Version 11)
Quarter: 2025Q4

REPORT INFORMATION
  Report Type: Spontaneous
  Country: US (occurrence: US)
  Receive Date: 20250708
  Receipt Date: 20251118
  Transmission Date: 20260118
  Serious: Yes (Death, Hospitalization, Other)
  Sender: KARYOPHARM THERAPEUTICS
  Company Number: US-KARYOPHARM-2025KPT100453

PATIENT

DRUGS (19)
  1. SELINEXOR [Suspect]
     Active Substance: SELINEXOR
     Indication: Plasma cell myeloma
     Dosage: 60 MG ON DAYS 1 AND 3 OF EACH WEEK
     Route: 048
     Dates: start: 20250627, end: 2025
  2. SELINEXOR [Suspect]
     Active Substance: SELINEXOR
     Dosage: 60 MG WEEKLY
     Route: 048
     Dates: start: 2025, end: 202508
  3. SELINEXOR [Suspect]
     Active Substance: SELINEXOR
     Dosage: 60 MG WEEKLY
     Route: 048
     Dates: start: 202508, end: 2025
  4. SELINEXOR [Suspect]
     Active Substance: SELINEXOR
     Dosage: 60 MG TWICE WEEKLY
     Route: 048
     Dates: start: 2025, end: 2025
  5. ACYCLOVIR [Concomitant]
     Active Substance: ACYCLOVIR
  6. ATENOLOL [Concomitant]
     Active Substance: ATENOLOL
  7. BACTRIM [Concomitant]
     Active Substance: SULFAMETHOXAZOLE\TRIMETHOPRIM
  8. BUMETANIDE [Concomitant]
     Active Substance: BUMETANIDE
  9. DEXAMETHASONE [Concomitant]
     Active Substance: DEXAMETHASONE
  10. ELIQUIS [Concomitant]
     Active Substance: APIXABAN
  11. DIPHENHYDRAMINE [Concomitant]
     Active Substance: DIPHENHYDRAMINE
  12. ROSUVASTATIN CALCIUM [Concomitant]
     Active Substance: ROSUVASTATIN CALCIUM
  13. NORCO [Concomitant]
     Active Substance: ACETAMINOPHEN\HYDROCODONE BITARTRATE
  14. OLANZAPINE [Concomitant]
     Active Substance: OLANZAPINE
  15. PREDNISONE [Concomitant]
     Active Substance: PREDNISONE
  16. ACETAMINOPHEN\HYDROCODONE [Concomitant]
     Active Substance: ACETAMINOPHEN\HYDROCODONE
  17. FENTANYL [Concomitant]
     Active Substance: FENTANYL
  18. ZOFRAN [Concomitant]
     Active Substance: ONDANSETRON HYDROCHLORIDE
  19. METOPROLOL [Concomitant]
     Active Substance: METOPROLOL

REACTIONS (10)
  - Death [Fatal]
  - Femur fracture [Not Recovered/Not Resolved]
  - Sciatica [Unknown]
  - Infection [Unknown]
  - Arthritis infective [Unknown]
  - Feeling hot [Unknown]
  - Rhinorrhoea [Unknown]
  - Pain [Unknown]
  - Heart rate increased [Recovering/Resolving]
  - Intercepted product prescribing error [Unknown]

NARRATIVE: CASE EVENT DATE: 20250101
